FAERS Safety Report 14140933 (Version 2)
Quarter: 2017Q4

REPORT INFORMATION
  Report Type: Report from Study
  Country: BR (occurrence: BR)
  Receive Date: 20171030
  Receipt Date: 20171107
  Transmission Date: 20180321
  Serious: No
  Sender: FDA-Public Use
  Company Number: PHHY2017BR149071

PATIENT
  Sex: Male
  Weight: 96 kg

DRUGS (3)
  1. COSENTYX [Suspect]
     Active Substance: SECUKINUMAB
     Indication: ANKYLOSING SPONDYLITIS
     Dosage: 2 DF, QW (2 AMPOULES OF 150 MG)
     Route: 058
     Dates: start: 20170925
  2. COSENTYX [Suspect]
     Active Substance: SECUKINUMAB
     Dosage: 2 DF, QW (2 AMPOULES OF 150 MG)
     Route: 058
  3. ETANERCEPT [Concomitant]
     Active Substance: ETANERCEPT
     Indication: ANKYLOSING SPONDYLITIS
     Dosage: 50 MG, QW
     Route: 058

REACTIONS (7)
  - Hepatomegaly [Recovered/Resolved]
  - Hepatic pain [Recovered/Resolved]
  - Pruritus [Recovering/Resolving]
  - Blister [Recovering/Resolving]
  - Abdominal pain upper [Not Recovered/Not Resolved]
  - Abdominal pain [Not Recovered/Not Resolved]
  - Hypersensitivity [Recovering/Resolving]
